FAERS Safety Report 7505434-4 (Version None)
Quarter: 2011Q2

REPORT INFORMATION
  Report Type: 
  Country: None (occurrence: None)
  Receive Date: 20110526
  Receipt Date: 20110512
  Transmission Date: 20111010
  Serious: Yes (Hospitalization, Other)
  Sender: FDA-Public Use
  Company Number: PHHY2011NL40405

PATIENT
  Sex: Female

DRUGS (4)
  1. TEGRETOL [Suspect]
     Dosage: 200 MG, DAILY
     Dates: start: 20110407
  2. TEGRETOL [Suspect]
     Indication: EPILEPSY
     Dosage: 200 MG, DAILY
     Dates: start: 20110407
  3. FUROSEMIDE [Concomitant]
  4. DEXAMETHASONE [Concomitant]

REACTIONS (6)
  - LOWER LIMB FRACTURE [None]
  - URINE OUTPUT DECREASED [None]
  - SOMNOLENCE [None]
  - PARALYSIS [None]
  - DRUG INEFFECTIVE [None]
  - CONSTIPATION [None]
